FAERS Safety Report 5643476-4 (Version None)
Quarter: 2008Q1

REPORT INFORMATION
  Report Type: 
  Country: None (occurrence: None)
  Receive Date: 20080228
  Receipt Date: 20080222
  Transmission Date: 20080703
  Serious: Yes (Other)
  Sender: FDA-Public Use
  Company Number: US-PFIZER INC-2008016744

PATIENT
  Sex: Female
  Weight: 70.3 kg

DRUGS (10)
  1. LIPITOR [Suspect]
     Indication: BLOOD CHOLESTEROL
     Dates: start: 20060101, end: 20080101
  2. NAPROXEN [Concomitant]
  3. CLONAZEPAM [Concomitant]
  4. CYCLOBENZAPRINE HCL [Concomitant]
  5. METOCLOPRAMIDE [Concomitant]
  6. DOCUSATE SODIUM [Concomitant]
  7. FLUVOXAMINE MALEATE [Concomitant]
  8. TAMSULOSIN HCL [Concomitant]
  9. PROPRANOLOL [Concomitant]
  10. DRUG, UNSPECIFIED [Concomitant]

REACTIONS (5)
  - AMNESIA [None]
  - FALL [None]
  - INJURY [None]
  - JOB DISSATISFACTION [None]
  - MEMORY IMPAIRMENT [None]
